FAERS Safety Report 7150743-4 (Version None)
Quarter: 2010Q4

REPORT INFORMATION
  Report Type: 
  Country: None (occurrence: None)
  Receive Date: 20101210
  Receipt Date: 20101202
  Transmission Date: 20110411
  Serious: Yes (Disabling)
  Sender: FDA-Public Use
  Company Number: GXBR2010US02046

PATIENT
  Age: 38 Year
  Sex: Female

DRUGS (4)
  1. ENOXAPARIN SODIUM (NGX) [Suspect]
     Indication: ANTICOAGULANT THERAPY
     Dosage: 40 MG, QD
     Route: 058
     Dates: end: 20101101
  2. LOVENOX [Suspect]
     Indication: ANTICOAGULANT THERAPY
     Dosage: UNK
     Route: 058
     Dates: start: 20100901
  3. ASPIRIN [Concomitant]
     Indication: THROMBOSIS PROPHYLAXIS
     Dosage: 81 MG, QD
  4. MULTI-VITAMINS [Concomitant]
     Indication: PREGNANCY

REACTIONS (9)
  - ARTHRALGIA [None]
  - ASTHENIA [None]
  - DRUG EXPOSURE DURING PREGNANCY [None]
  - DYSSTASIA [None]
  - FALL [None]
  - GAIT DISTURBANCE [None]
  - PAIN IN EXTREMITY [None]
  - PRURITUS [None]
  - WALKING AID USER [None]
